FAERS Safety Report 20269599 (Version 2)
Quarter: 2022Q1

REPORT INFORMATION
  Report Type: Spontaneous
  Country: PT (occurrence: PT)
  Receive Date: 20220101
  Receipt Date: 20220117
  Transmission Date: 20220424
  Serious: Yes (Other)
  Sender: FDA-Public Use
  Company Number: PT-LUPIN PHARMACEUTICALS INC.-2021-25511

PATIENT

DRUGS (2)
  1. OSELTAMIVIR [Suspect]
     Active Substance: OSELTAMIVIR
     Indication: Influenza
     Dosage: UNK
     Route: 064
     Dates: start: 2018
  2. AMOXICILLIN\CLAVULANATE POTASSIUM [Suspect]
     Active Substance: AMOXICILLIN\CLAVULANATE POTASSIUM
     Indication: Influenza
     Dosage: UNK
     Route: 064
     Dates: start: 2018

REACTIONS (2)
  - Premature baby [Unknown]
  - Foetal exposure during pregnancy [Unknown]

NARRATIVE: CASE EVENT DATE: 20180101
